FAERS Safety Report 18637995 (Version 1)
Quarter: 2020Q4

REPORT INFORMATION
  Report Type: Spontaneous
  Country: US (occurrence: US)
  Receive Date: 20201218
  Receipt Date: 20201218
  Transmission Date: 20210114
  Serious: Yes (Other)
  Sender: FDA-Public Use
  Company Number: US-TEVA-2020-US-1858656

PATIENT
  Age: 83 Year
  Sex: Female

DRUGS (3)
  1. TYLENOL [Suspect]
     Active Substance: ACETAMINOPHEN
     Route: 065
  2. GABAPENTIN. [Suspect]
     Active Substance: GABAPENTIN
     Dosage: 900 MILLIGRAM DAILY;
     Route: 065
  3. GABAPENTIN. [Suspect]
     Active Substance: GABAPENTIN
     Indication: NEURALGIA
     Dosage: 300 MILLIGRAM DAILY;
     Route: 065

REACTIONS (16)
  - Feeling abnormal [Recovered/Resolved]
  - Drug ineffective [Unknown]
  - Gross motor delay [Unknown]
  - Musculoskeletal stiffness [Not Recovered/Not Resolved]
  - Urinary tract infection [Recovered/Resolved]
  - Bradyphrenia [Recovered/Resolved]
  - Hypertension [Recovered/Resolved]
  - Malaise [Unknown]
  - Dyspnoea [Unknown]
  - Urine odour abnormal [Recovered/Resolved]
  - Swelling [Not Recovered/Not Resolved]
  - Micturition urgency [Recovered/Resolved]
  - Mental impairment [Unknown]
  - Somnolence [Unknown]
  - Nasal congestion [Recovered/Resolved]
  - Chromaturia [Recovered/Resolved]
